FAERS Safety Report 15886694 (Version 1)
Quarter: 2019Q1

REPORT INFORMATION
  Report Type: Spontaneous
  Country: ES (occurrence: ES)
  Receive Date: 20190129
  Receipt Date: 20190129
  Transmission Date: 20190417
  Serious: Yes (Other)
  Sender: FDA-Public Use
  Company Number: ES-009507513-1901ESP008823

PATIENT
  Age: 88 Year
  Sex: Female
  Weight: 68.5 kg

DRUGS (1)
  1. FOSAVANCE [Suspect]
     Active Substance: ALENDRONATE SODIUM\CHOLECALCIFEROL
     Indication: FEMUR FRACTURE
     Dosage: 1 DOSAGE FORM, EVERY 7 DAYS
     Route: 048
     Dates: start: 20180607, end: 20181031

REACTIONS (1)
  - Dermatitis bullous [Recovered/Resolved]

NARRATIVE: CASE EVENT DATE: 20180901
